FAERS Safety Report 6607749-0 (Version None)
Quarter: 2010Q1

REPORT INFORMATION
  Report Type: 
  Country: None (occurrence: None)
  Receive Date: 20100301
  Receipt Date: 20100224
  Transmission Date: 20100710
  Serious: Yes (Hospitalization, Other)
  Sender: FDA-Public Use
  Company Number: BR-NOVOPROD-287885

PATIENT
  Sex: Female
  Weight: 93.9 kg

DRUGS (6)
  1. INSULIN DETEMIR PENFILL [Suspect]
     Indication: TYPE 1 DIABETES MELLITUS
     Dosage: 78 IU, QD
     Route: 058
     Dates: start: 20080923, end: 20090529
  2. INSULIN DETEMIR PENFILL [Suspect]
     Dosage: 30+14
     Route: 058
     Dates: start: 20090602
  3. NOVORAPID PENFILL 3.0 ML [Suspect]
     Indication: TYPE 1 DIABETES MELLITUS
     Dosage: 60 IU, QD
     Route: 058
     Dates: start: 20080923, end: 20090529
  4. NOVORAPID PENFILL 3.0 ML [Suspect]
     Dosage: 6+8+4
     Dates: start: 20090602
  5. FOLIC ACID [Concomitant]
     Dates: start: 20080908
  6. MATERNA                            /01700601/ [Concomitant]

REACTIONS (1)
  - INTRA-UTERINE DEATH [None]
